FAERS Safety Report 4656188-0 (Version None)
Quarter: 2005Q2

REPORT INFORMATION
  Report Type: 
  Country: None (occurrence: None)
  Receive Date: 20050509
  Receipt Date: 20050131
  Transmission Date: 20051028
  Serious: No
  Sender: FDA-Public Use
  Company Number: US-GLAXOSMITHKLINE-A0543052A

PATIENT
  Age: 57 Year
  Sex: Male

DRUGS (5)
  1. AVANDAMET [Suspect]
     Dosage: 4MG TWICE PER DAY
     Route: 048
     Dates: start: 20050117
  2. UNIVASC [Concomitant]
  3. PRILOSEC [Concomitant]
  4. OMEGA-3 [Concomitant]
  5. ANTI-CHOLESTEROL MEDICATION [Concomitant]
     Route: 065

REACTIONS (1)
  - PARAESTHESIA [None]
